FAERS Safety Report 7728579-2 (Version None)
Quarter: 2011Q3

REPORT INFORMATION
  Report Type: 
  Country: None (occurrence: None)
  Receive Date: 20110831
  Receipt Date: 20110831
  Transmission Date: 20111222
  Serious: No
  Sender: FDA-Public Use
  Company Number: None

PATIENT
  Age: 55 Year
  Sex: Female
  Weight: 61.2356 kg

DRUGS (3)
  1. DIAZEPAM [Suspect]
     Indication: DRUG THERAPY
     Dosage: 10MG BID PO
     Route: 048
     Dates: start: 20110707
  2. CITALOPRAM HYDROBROMIDE [Concomitant]
  3. DIAZEPAM [Suspect]
     Indication: DRUG THERAPY
     Dosage: 10MG BID PO
     Route: 048
     Dates: start: 20110707

REACTIONS (3)
  - PRODUCT SUBSTITUTION ISSUE [None]
  - PRURITUS [None]
  - ADVERSE DRUG REACTION [None]
